FAERS Safety Report 20684250 (Version 2)
Quarter: 2022Q2

REPORT INFORMATION
  Report Type: Report from Study
  Country: US (occurrence: US)
  Receive Date: 20220407
  Receipt Date: 20220620
  Transmission Date: 20220721
  Serious: Yes (Other)
  Sender: FDA-Public Use
  Company Number: US-TAKEDA-2022TUS021427

PATIENT
  Age: 58 Year
  Sex: Female

DRUGS (3)
  1. HUMAN IMMUNOGLOBULIN G [Suspect]
     Active Substance: HUMAN IMMUNOGLOBULIN G
     Indication: Immunodeficiency common variable
     Dosage: 30 GRAM, MONTHLY
     Route: 042
     Dates: start: 2015
  2. HUMAN IMMUNOGLOBULIN G [Suspect]
     Active Substance: HUMAN IMMUNOGLOBULIN G
     Dosage: 30 GRAM, Q2WEEKS
     Route: 042
  3. HUMAN IMMUNOGLOBULIN G [Suspect]
     Active Substance: HUMAN IMMUNOGLOBULIN G
     Dosage: UNK
     Route: 042

REACTIONS (15)
  - Loss of consciousness [Recovered/Resolved]
  - Respiratory failure [Unknown]
  - Myocardial infarction [Unknown]
  - Small cell lung cancer [Unknown]
  - Metastases to central nervous system [Unknown]
  - Attention deficit hyperactivity disorder [Unknown]
  - Phlebitis [Unknown]
  - Illness [Unknown]
  - Poor venous access [Unknown]
  - Nasopharyngitis [Unknown]
  - Viral infection [Unknown]
  - Condition aggravated [Unknown]
  - Blood pressure increased [Unknown]
  - Hyperhidrosis [Unknown]
  - Hypotension [Unknown]

NARRATIVE: CASE EVENT DATE: 20190401
